FAERS Safety Report 5827488-3 (Version None)
Quarter: 2008Q3

REPORT INFORMATION
  Report Type: 
  Country: None (occurrence: None)
  Receive Date: 20080730
  Receipt Date: 20080717
  Transmission Date: 20090109
  Serious: Yes (Other)
  Sender: FDA-Public Use
  Company Number: GB-ASTRAZENECA-2008GB01409

PATIENT
  Sex: Male

DRUGS (3)
  1. SEROQUEL [Suspect]
     Dosage: 25 MG TWICE DURING THE DAY AND 50 MG AT NIGHT
     Route: 048
  2. ARICEPT [Concomitant]
  3. PLAVIX [Concomitant]

REACTIONS (1)
  - PLATELET COUNT DECREASED [None]
